FAERS Safety Report 4481315-8 (Version None)
Quarter: 2004Q3

REPORT INFORMATION
  Report Type: 
  Country: None (occurrence: None)
  Receive Date: 20040923
  Receipt Date: 20040709
  Transmission Date: 20050211
  Serious: No
  Sender: FDA-Public Use
  Company Number: USA030948415

PATIENT
  Age: 88 Year
  Sex: Female

DRUGS (2)
  1. FORTEO [Suspect]
     Dosage: 20 UG/DAY
     Dates: start: 20030925
  2. COUMADIN [Concomitant]

REACTIONS (2)
  - FATIGUE [None]
  - INJECTION SITE HAEMORRHAGE [None]
